FAERS Safety Report 4661311-8 (Version None)
Quarter: 2005Q2

REPORT INFORMATION
  Report Type: 
  Country: None (occurrence: None)
  Receive Date: 20050513
  Receipt Date: 20050428
  Transmission Date: 20051028
  Serious: Yes (Hospitalization, Other)
  Sender: FDA-Public Use
  Company Number: JP-JNJFOC-20050402592

PATIENT
  Age: 31 Year
  Sex: Male

DRUGS (2)
  1. CRAVIT [Suspect]
     Indication: NAIL DISORDER
     Route: 049
  2. LOXONIN [Suspect]
     Indication: NAIL DISORDER
     Route: 049

REACTIONS (2)
  - CONVULSION [None]
  - DEPRESSED LEVEL OF CONSCIOUSNESS [None]
